FAERS Safety Report 14340017 (Version 8)
Quarter: 2018Q2

REPORT INFORMATION
  Report Type: Spontaneous
  Country: ES (occurrence: ES)
  Receive Date: 20171231
  Receipt Date: 20180622
  Transmission Date: 20180711
  Serious: Yes (Other)
  Sender: FDA-Public Use
  Company Number: ES-TEVA-2017-ES-832259

PATIENT
  Sex: Female

DRUGS (24)
  1. TOPIRAMATE. [Suspect]
     Active Substance: TOPIRAMATE
     Indication: PRODUCT USED FOR UNKNOWN INDICATION
     Dosage: 1 DOSAGE FORMS DAILY; 50 MG
     Route: 065
     Dates: start: 20170420, end: 20170509
  2. TEPAZEPAM [Suspect]
     Active Substance: DIAZEPAM\SULPIRIDE
     Indication: PRODUCT USED FOR UNKNOWN INDICATION
     Dosage: QD
     Route: 065
     Dates: start: 20160901
  3. AMITRIPTYLINE 25 MG [Suspect]
     Active Substance: AMITRIPTYLINE
     Dosage: 25 UNK
     Route: 065
  4. SIMVASTATIN. [Suspect]
     Active Substance: SIMVASTATIN
     Indication: PRODUCT USED FOR UNKNOWN INDICATION
     Dosage: 1 DOSAGE FORMS DAILY; 40 MG
     Route: 065
     Dates: start: 20160901, end: 20170420
  5. TOPIRAMATE. [Suspect]
     Active Substance: TOPIRAMATE
     Dosage: .5 DOSAGE FORMS DAILY; 100 MG
     Dates: start: 20170203, end: 20170420
  6. DIAZEPAM, SULPIRIDE [Suspect]
     Active Substance: DIAZEPAM\SULPIRIDE
     Route: 065
     Dates: start: 20160901
  7. ESCITALOPRAM [Suspect]
     Active Substance: ESCITALOPRAM OXALATE
     Indication: PRODUCT USED FOR UNKNOWN INDICATION
     Dosage: 1 DOSAGE FORMS DAILY; 10 MG
     Route: 065
     Dates: start: 20160901
  8. SIMVASTATIN. [Suspect]
     Active Substance: SIMVASTATIN
     Dosage: 20 MG
     Route: 065
     Dates: start: 20170420
  9. NAPROXEN. [Suspect]
     Active Substance: NAPROXEN
     Indication: PRODUCT USED FOR UNKNOWN INDICATION
     Dosage: 2 DOSAGE FORMS DAILY; 500 MG
     Route: 065
     Dates: start: 20160901, end: 20161118
  10. AMITRIPTYLINE 25 MG [Suspect]
     Active Substance: AMITRIPTYLINE
     Indication: HEADACHE
     Dosage: 12.5 MILLIGRAM DAILY; 25 MG
     Route: 065
     Dates: start: 20170509, end: 20170516
  11. AMITRIPTYLINE 25 MG [Suspect]
     Active Substance: AMITRIPTYLINE
     Dosage: 25 MILLIGRAM DAILY; 25 MG
     Route: 065
     Dates: start: 20170516
  12. OMEPRAZOLE. [Suspect]
     Active Substance: OMEPRAZOLE
     Indication: PRODUCT USED FOR UNKNOWN INDICATION
     Dosage: 1 DOSAGE FORMS DAILY; 20 MG
     Route: 065
     Dates: start: 20160901, end: 20161125
  13. LORMETAZEPAM [Suspect]
     Active Substance: LORMETAZEPAM
     Indication: PRODUCT USED FOR UNKNOWN INDICATION
     Dosage: 1 DOSAGE FORMS DAILY; 1 MG
     Route: 065
     Dates: start: 20160901, end: 20160930
  14. SIMVASTATIN. [Suspect]
     Active Substance: SIMVASTATIN
     Dosage: 20 MG
     Route: 065
  15. DIAZEPAM. [Suspect]
     Active Substance: DIAZEPAM
     Indication: PRODUCT USED FOR UNKNOWN INDICATION
     Dosage: .5 DOSAGE FORMS DAILY; 5 MG
     Route: 065
     Dates: start: 20160930, end: 20161021
  16. METOCLOPRAMIDE. [Concomitant]
     Active Substance: METOCLOPRAMIDE
     Indication: PRODUCT USED FOR UNKNOWN INDICATION
     Dosage: 1 WEEK TREATMENT
     Route: 065
     Dates: start: 20161125
  17. AMLODIPINE [Suspect]
     Active Substance: AMLODIPINE BESYLATE
     Indication: PRODUCT USED FOR UNKNOWN INDICATION
     Dosage: 1 DOSAGE FORMS DAILY; 5 MG
     Route: 065
     Dates: start: 20160901
  18. TRAMADOL W/PARACETAMOL [Suspect]
     Active Substance: ACETAMINOPHEN\TRAMADOL
     Indication: PRODUCT USED FOR UNKNOWN INDICATION
     Dosage: 3 DOSAGE FORMS DAILY; 1 DF = 37.5/325 MG
     Route: 065
     Dates: start: 20161118
  19. ENALAPRIL/HYDROCHLOROTHIAZIDE [Suspect]
     Active Substance: ENALAPRIL MALEATE\HYDROCHLOROTHIAZIDE
     Indication: PRODUCT USED FOR UNKNOWN INDICATION
     Dosage: 1 DOSAGE FORMS DAILY; 1 DF = 20/12.5 MG
     Route: 065
     Dates: start: 20160901
  20. DIAZEPAM. [Suspect]
     Active Substance: DIAZEPAM
     Dosage: 5 MG
     Route: 065
     Dates: start: 20160901
  21. AMITRIPTYLINE 10 MG [Suspect]
     Active Substance: AMITRIPTYLINE
     Indication: HEADACHE
     Dosage: QD
     Route: 065
     Dates: start: 20161118, end: 20161223
  22. AMITRIPTYLINE HYDROCHLORIDE. [Suspect]
     Active Substance: AMITRIPTYLINE HYDROCHLORIDE
     Route: 065
     Dates: start: 20170516
  23. PARACETAMOL [Suspect]
     Active Substance: ACETAMINOPHEN
     Indication: PRODUCT USED FOR UNKNOWN INDICATION
     Dosage: 3 DOSAGE FORMS DAILY; 1 G
     Route: 065
     Dates: start: 20160901, end: 20161118
  24. GLIBENCLAMIDA [Suspect]
     Active Substance: GLYBURIDE
     Indication: PRODUCT USED FOR UNKNOWN INDICATION
     Dosage: 2 DOSAGE FORMS DAILY; 5 MG
     Route: 065
     Dates: start: 20160901

REACTIONS (9)
  - Headache [Not Recovered/Not Resolved]
  - Depression [Recovering/Resolving]
  - Somnolence [Recovering/Resolving]
  - Dizziness [Recovering/Resolving]
  - Drug ineffective [Unknown]
  - Pain in extremity [Recovered/Resolved]
  - Insomnia [Recovering/Resolving]
  - Fall [Unknown]
  - Treatment noncompliance [Unknown]

NARRATIVE: CASE EVENT DATE: 201610
